FAERS Safety Report 7112686-1 (Version None)
Quarter: 2010Q4

REPORT INFORMATION
  Report Type: 
  Country: None (occurrence: None)
  Receive Date: 20101119
  Receipt Date: 20101108
  Transmission Date: 20110411
  Serious: Yes (Hospitalization, Other)
  Sender: FDA-Public Use
  Company Number: PHHY2010TW68156

PATIENT
  Sex: Female
  Weight: 42 kg

DRUGS (3)
  1. ZOLEDRONATE T29581++BM [Suspect]
     Dosage: 4 MG/DAY
     Dates: start: 20081216
  2. CAPECITABINE [Concomitant]
     Indication: BREAST CANCER
     Dosage: 2500 MG, UNK
     Dates: start: 20100914
  3. LAPATINIB [Concomitant]
     Indication: BREAST CANCER
     Dosage: 1250 MG
     Dates: start: 20100914

REACTIONS (7)
  - C-REACTIVE PROTEIN INCREASED [None]
  - CRANIOTOMY [None]
  - LEUKOCYTOSIS [None]
  - LIVER FUNCTION TEST ABNORMAL [None]
  - METASTASES TO CENTRAL NERVOUS SYSTEM [None]
  - PYREXIA [None]
  - TUMOUR HAEMORRHAGE [None]
